FAERS Safety Report 5753795-9 (Version None)
Quarter: 2008Q2

REPORT INFORMATION
  Report Type: 
  Country: None (occurrence: None)
  Receive Date: 20080527
  Receipt Date: 20080527
  Transmission Date: 20081010
  Serious: No
  Sender: FDA-Public Use
  Company Number: None

PATIENT
  Sex: Male
  Weight: 15.8759 kg

DRUGS (1)
  1. AZITHROMYCIN [Suspect]
     Indication: SINUSITIS
     Dosage: 1 TSP FIRST DAY, 1/2 TSP NEXT 4  ONCE A DAY   PO
     Route: 048
     Dates: start: 20080522, end: 20080525

REACTIONS (4)
  - AGGRESSION [None]
  - INITIAL INSOMNIA [None]
  - PRURITUS [None]
  - PSYCHOMOTOR HYPERACTIVITY [None]
